FAERS Safety Report 12137355 (Version 1)
Quarter: 2016Q1

REPORT INFORMATION
  Report Type: Spontaneous
  Country: CA (occurrence: CA)
  Receive Date: 20160302
  Receipt Date: 20160302
  Transmission Date: 20160526
  Serious: Yes (Disabling)
  Sender: FDA-Public Use
  Company Number: CA-TEVA-639676ACC

PATIENT
  Age: 75 Year
  Sex: Male
  Weight: 97.61 kg

DRUGS (5)
  1. BISOPROLOL [Concomitant]
     Active Substance: BISOPROLOL
  2. NORVASC [Concomitant]
     Active Substance: AMLODIPINE BESYLATE
  3. RASILEZ [Concomitant]
     Active Substance: ALISKIREN
  4. TYLENOL [Concomitant]
     Active Substance: ACETAMINOPHEN
  5. TAMSULOSIN [Suspect]
     Active Substance: TAMSULOSIN
     Indication: BENIGN PROSTATIC HYPERPLASIA
     Dosage: .4 MILLIGRAM DAILY;
     Route: 065

REACTIONS (2)
  - Pollakiuria [Recovered/Resolved]
  - Abdominal discomfort [Recovered/Resolved]
